FAERS Safety Report 4655604-8 (Version None)
Quarter: 2005Q2

REPORT INFORMATION
  Report Type: 
  Country: None (occurrence: None)
  Receive Date: 20050505
  Receipt Date: 20050427
  Transmission Date: 20051028
  Serious: Yes (Hospitalization)
  Sender: FDA-Public Use
  Company Number: COV2-2005-00009

PATIENT
  Age: 67 Year
  Sex: Female
  Weight: 63 kg

DRUGS (16)
  1. FOSRENOL (LANATHUM CARBONATE 500 MG) TABLET CHEWABLE [Suspect]
     Indication: HYPERPHOSPHATAEMIA
     Dosage: 500 MG, 3X/DAY;TID, ORAL
     Route: 048
     Dates: start: 20050406, end: 20050411
  2. REGLAN/USA/ORAL SINGLE DOSE [Concomitant]
  3. LOPRESSOR [Concomitant]
  4. TRAVATAN (TRAVOPROST) SOLUTION [Concomitant]
  5. PENLAC (CICLOPIROX) TOPICAL SOLUTION [Concomitant]
  6. ECONAZOLE (ECONAZOLE) CREAM [Concomitant]
  7. BENICAR [Concomitant]
  8. BOOST PLUS LIQUID [Concomitant]
  9. NEPHROCAPS (VITAMINS NOS, FOLIC ACID) [Concomitant]
  10. QUINIDINE SULFATE (QUINIDINE SULFATE) CAPSULE [Concomitant]
  11. NORVASC/DEN/(AMLODIPINE BESILATE) [Concomitant]
  12. PLAVIX [Concomitant]
  13. IMODIUM ^JASSEN^ (LOPERAMIDE HYDROCHLORIDE) CAPSULE [Concomitant]
  14. LEXAPRO (ESCITALOPRMA OXALATE) [Concomitant]
  15. TIMOLOL (TIMOLOL) SOLUTION [Concomitant]
  16. AZOPT (BRINZOLAMIDE) SOLUTION [Concomitant]

REACTIONS (2)
  - DIARRHOEA [None]
  - HYPERKALAEMIA [None]
